FAERS Safety Report 5202544-1 (Version None)
Quarter: 2007Q1

REPORT INFORMATION
  Report Type: 
  Country: None (occurrence: None)
  Receive Date: 20070109
  Receipt Date: 20061228
  Transmission Date: 20070707
  Serious: Yes (Other)
  Sender: FDA-Public Use
  Company Number: US-PFIZER INC-2007000447

PATIENT
  Sex: Female
  Weight: 77.1 kg

DRUGS (2)
  1. NEURONTIN [Suspect]
     Indication: PAIN
     Dates: start: 20060401, end: 20060101
  2. LYRICA [Suspect]
     Indication: PAIN

REACTIONS (3)
  - AMNESIA [None]
  - PAIN [None]
  - WEIGHT INCREASED [None]
